FAERS Safety Report 8966502 (Version 2)
Quarter: 2013Q1

REPORT INFORMATION
  Report Type: Spontaneous
  Country: US (occurrence: US)
  Receive Date: 20121217
  Receipt Date: 20130102
  Transmission Date: 20140127
  Serious: No
  Sender: FDA-Public Use
  Company Number: US-BAYER-2012-127177

PATIENT
  Age: 85 Year
  Sex: Male

DRUGS (10)
  1. LEVITRA [Suspect]
     Indication: ERECTILE DYSFUNCTION
     Dosage: 20 MG, UNK
     Route: 048
  2. LEVITRA [Suspect]
     Indication: ERECTILE DYSFUNCTION
     Dosage: 20 MG, UNK
     Route: 048
     Dates: start: 20121202
  3. STAXYN (FDT/ODT) [Suspect]
  4. TERAZOSIN [Concomitant]
  5. LISINOPRIL [Concomitant]
  6. TOPROL [Concomitant]
  7. FLECAINIDE [Concomitant]
  8. FUROSEMIDE [Concomitant]
  9. ALLOPURINOL [Concomitant]
  10. SIMVASTATIN [Concomitant]

REACTIONS (2)
  - Drug ineffective [None]
  - Wrong technique in drug usage process [None]
